FAERS Safety Report 14913386 (Version 1)
Quarter: 2018Q2

REPORT INFORMATION
  Report Type: Other
  Country: US (occurrence: US)
  Receive Date: 20180518
  Receipt Date: 20180518
  Transmission Date: 20180711
  Serious: Yes (Death)
  Sender: FDA-Public Use
  Company Number: US-WES PHARMA INC-2048059

PATIENT
  Age: 21 Year
  Sex: Male

DRUGS (6)
  1. METHADONE [Suspect]
     Active Substance: METHADONE HYDROCHLORIDE
     Route: 065
  2. OXYCODONE HYDROCHLORIDE. [Suspect]
     Active Substance: OXYCODONE HYDROCHLORIDE
     Indication: PRODUCT USED FOR UNKNOWN INDICATION
     Route: 065
  3. ALPRAZOLAM. [Suspect]
     Active Substance: ALPRAZOLAM
     Route: 065
  4. ALCOHOL. [Suspect]
     Active Substance: ALCOHOL
     Route: 065
  5. COCAINE HYDROCHLORIDE. [Suspect]
     Active Substance: COCAINE HYDROCHLORIDE
     Route: 065
  6. METHYLONE [Suspect]
     Active Substance: METHYLPREDNISOLONE
     Route: 065

REACTIONS (1)
  - Toxicity to various agents [Fatal]
